FAERS Safety Report 9146174 (Version 1)
Quarter: 2013Q1

REPORT INFORMATION
  Report Type: Spontaneous
  Country: US (occurrence: None)
  Receive Date: 20130204
  Receipt Date: 20130204
  Transmission Date: 20140127
  Serious: Yes (Death)
  Sender: FDA-Public Use
  Company Number: DSA_62201_2013

PATIENT
  Sex: Female

DRUGS (3)
  1. XENAZINE 12.5 MG (NOT SPECIFIED) [Suspect]
     Indication: PRODUCT USED FOR UNKNOWN INDICATION
     Dosage: (2 TABLETS EVERY MORNING, 2 TABLETS MIDDAY, AND 1 TABLET AT NIGHT ORAL)
     Route: 048
  2. GABAPENTIN [Concomitant]
  3. AMITRIPTYLIN [Concomitant]

REACTIONS (1)
  - Death [None]
